FAERS Safety Report 17589168 (Version 1)
Quarter: 2020Q1

REPORT INFORMATION
  Report Type: Spontaneous
  Country: US (occurrence: US)
  Receive Date: 20200327
  Receipt Date: 20200327
  Transmission Date: 20200409
  Serious: No
  Sender: FDA-Public Use
  Company Number: US-ALLERGAN-1914503US

PATIENT
  Sex: Female

DRUGS (1)
  1. LATISSE [Suspect]
     Active Substance: BIMATOPROST
     Indication: SKIN WRINKLING
     Dosage: 1 GTT, QHS
     Route: 061
     Dates: start: 20190122, end: 20190331

REACTIONS (1)
  - Drug ineffective [Unknown]
